FAERS Safety Report 7888218-7 (Version None)
Quarter: 2011Q4

REPORT INFORMATION
  Report Type: 
  Country: None (occurrence: None)
  Receive Date: 20111103
  Receipt Date: 20111026
  Transmission Date: 20120403
  Serious: Yes (Life-Threatening)
  Sender: FDA-Public Use
  Company Number: GB-SANOFI-AVENTIS-2011SA050511

PATIENT
  Age: 43 Year
  Sex: Female
  Weight: 70.9 kg

DRUGS (7)
  1. LEFLUNOMIDE [Suspect]
     Route: 048
     Dates: start: 20031113
  2. CETIRIZINE HCL [Concomitant]
     Dates: start: 20040101
  3. LEFLUNOMIDE [Suspect]
     Route: 048
     Dates: start: 20031229, end: 20070101
  4. ETODOLAC [Concomitant]
     Dates: start: 20050505
  5. LANSOPRAZOLE [Concomitant]
     Dates: start: 20100429
  6. HARPAGOPHYTUM PROCUMBENS [Concomitant]
  7. LEFLUNOMIDE [Suspect]
     Route: 048
     Dates: start: 20100101, end: 20110707

REACTIONS (5)
  - ARTHRALGIA [None]
  - BREAST CANCER [None]
  - RENAL CELL CARCINOMA [None]
  - BREAST MASS [None]
  - METASTASES TO LYMPH NODES [None]
